FAERS Safety Report 4681500-6 (Version None)
Quarter: 2005Q2

REPORT INFORMATION
  Report Type: 
  Country: None (occurrence: None)
  Receive Date: 20050602
  Receipt Date: 20050520
  Transmission Date: 20051028
  Serious: Yes (Other)
  Sender: FDA-Public Use
  Company Number: 2005077549

PATIENT
  Age: 26 Year
  Sex: Female
  Weight: 72.5755 kg

DRUGS (2)
  1. ROGAINE [Suspect]
     Indication: ALOPECIA
     Dosage: 1 ML BID; TOPICAL
     Route: 061
     Dates: start: 20050301, end: 20050520
  2. ORAL CONTRACEPTIVE NOS [Concomitant]

REACTIONS (3)
  - BLOOD PRESSURE INCREASED [None]
  - DRUG INEFFECTIVE [None]
  - RENIN INCREASED [None]
